FAERS Safety Report 8499817-6 (Version None)
Quarter: 2012Q3

REPORT INFORMATION
  Report Type: 
  Country: None (occurrence: None)
  Receive Date: 20120703
  Receipt Date: 20120703
  Transmission Date: 20120928
  Serious: Yes (Hospitalization)
  Sender: FDA-Public Use
  Company Number: None

PATIENT
  Sex: Male
  Weight: 99.5 kg

DRUGS (8)
  1. KEPPRA [Concomitant]
  2. FLOMAX [Concomitant]
  3. BYSTOLIC [Concomitant]
  4. XARELTO [Suspect]
     Indication: THROMBOSIS PROPHYLAXIS
     Dosage: DAILY ORAL
  5. XARELTO [Suspect]
     Indication: ATRIAL FIBRILLATION
     Dosage: DAILY ORAL
  6. ALDACTONE [Concomitant]
  7. KLOR-CON [Concomitant]
  8. LASIX [Concomitant]

REACTIONS (7)
  - ALANINE AMINOTRANSFERASE INCREASED [None]
  - DIARRHOEA [None]
  - WEIGHT DECREASED [None]
  - ASTHENIA [None]
  - THROMBOCYTOPENIA [None]
  - DIABETES MELLITUS INADEQUATE CONTROL [None]
  - ASPARTATE AMINOTRANSFERASE INCREASED [None]
